FAERS Safety Report 15854949 (Version 1)
Quarter: 2019Q1

REPORT INFORMATION
  Report Type: Other
  Country: US (occurrence: US)
  Receive Date: 20190122
  Receipt Date: 20190122
  Transmission Date: 20190417
  Serious: Yes (Hospitalization)
  Sender: FDA-Public Use
  Company Number: US-MIKART, INC.-2061564

PATIENT
  Age: 71 Year
  Sex: Male
  Weight: 92.27 kg

DRUGS (7)
  1. PLAVIX [Concomitant]
     Active Substance: CLOPIDOGREL BISULFATE
  2. REPATHA [Concomitant]
     Active Substance: EVOLOCUMAB
  3. BLOOD THINNING PILL (NAME NOT SPECIFIED) [Concomitant]
  4. VALIUM [Concomitant]
     Active Substance: DIAZEPAM
  5. INSULIN [Concomitant]
     Active Substance: INSULIN NOS
  6. LOW DOSE ASPIRIN [Concomitant]
     Active Substance: ASPIRIN
  7. HYDROCODONE BITARTRATE AND ACETAMINOPHEN [Suspect]
     Active Substance: ACETAMINOPHEN\HYDROCODONE BITARTRATE
     Route: 048

REACTIONS (6)
  - Limb discomfort [Unknown]
  - Loss of consciousness [Unknown]
  - Blood glucose increased [Unknown]
  - Low density lipoprotein decreased [Unknown]
  - Arteriosclerosis [Unknown]
  - Gait disturbance [Unknown]
